FAERS Safety Report 21194343 (Version 1)
Quarter: 2022Q3

REPORT INFORMATION
  Report Type: Spontaneous
  Country: FR (occurrence: FR)
  Receive Date: 20220810
  Receipt Date: 20220810
  Transmission Date: 20221027
  Serious: Yes (Hospitalization, Other)
  Sender: FDA-Public Use
  Company Number: FR-SA-SAC20220729000103

PATIENT
  Sex: Female

DRUGS (4)
  1. RISPERDAL [Suspect]
     Active Substance: RISPERIDONE
     Indication: Psychomotor retardation
     Route: 065
  2. CYAMEMAZINE [Suspect]
     Active Substance: CYAMEMAZINE
     Indication: Psychomotor retardation
     Route: 065
  3. LAMOTRIGINE [Suspect]
     Active Substance: LAMOTRIGINE
     Indication: Psychomotor retardation
     Route: 065
  4. VALPROATE SODIUM [Concomitant]
     Active Substance: VALPROATE SODIUM

REACTIONS (7)
  - Apathy [Unknown]
  - Sleep disorder [Unknown]
  - Brief psychotic disorder, with postpartum onset [Unknown]
  - Persistent depressive disorder [Unknown]
  - Asthenia [Unknown]
  - Psychomotor retardation [Unknown]
  - Maternal exposure during pregnancy [Unknown]
